FAERS Safety Report 8838008 (Version 1)
Quarter: 2012Q4

REPORT INFORMATION
  Report Type: 
  Country: US (occurrence: US)
  Receive Date: 20121012
  Receipt Date: 20121012
  Transmission Date: 20130627
  Serious: Yes (Other)
  Sender: FDA-Public Use
  Company Number: US-ROCHE-1141251

PATIENT
  Sex: Male
  Weight: 48.18 kg

DRUGS (7)
  1. PROTROPIN [Suspect]
     Indication: HYPOPITUITARISM
     Dosage: strength 10 mg/cm, diluted with 2.2 ml (injection volume 0.5 ml)
     Route: 058
  2. PROTROPIN [Suspect]
     Indication: CRANIOPHARYNGIOMA
     Dosage: diluted with 1 ml, (0.4 ml)
     Route: 058
  3. SYNTHROID [Concomitant]
  4. DDAVP [Concomitant]
  5. SOLU-CORTEF [Concomitant]
  6. PHENERGAN [Concomitant]
  7. ANDRODERM [Concomitant]

REACTIONS (3)
  - Asthma [Unknown]
  - Rhinitis allergic [Unknown]
  - Cough [Unknown]
